FAERS Safety Report 25500861 (Version 2)
Quarter: 2025Q4

REPORT INFORMATION
  Report Type: Spontaneous
  Country: US (occurrence: US)
  Receive Date: 20250701
  Receipt Date: 20251217
  Transmission Date: 20260119
  Serious: No
  Sender: ARDELYX
  Company Number: US-ARDELYX-2025ARDX003104

PATIENT
  Sex: Female

DRUGS (1)
  1. XPHOZAH [Suspect]
     Active Substance: TENAPANOR HYDROCHLORIDE
     Indication: Product used for unknown indication
     Dosage: 30 MG
     Route: 065

REACTIONS (5)
  - Dizziness [Recovering/Resolving]
  - Dehydration [Recovering/Resolving]
  - Palpitations [Recovered/Resolved]
  - Hyperhidrosis [Recovered/Resolved]
  - Off label use [Unknown]
